FAERS Safety Report 7928403-9 (Version None)
Quarter: 2011Q4

REPORT INFORMATION
  Report Type: 
  Country: None (occurrence: None)
  Receive Date: 20111118
  Receipt Date: 20111109
  Transmission Date: 20120403
  Serious: No
  Sender: FDA-Public Use
  Company Number: US-PFIZER INC-2011274989

PATIENT
  Sex: Female
  Weight: 58.957 kg

DRUGS (2)
  1. VICKS DAYQUIL SINUS PRESSURE + PAIN RELIEF W/ IBUPROFEN [Suspect]
     Indication: COUGH
  2. VICKS DAYQUIL SINUS PRESSURE + PAIN RELIEF W/ IBUPROFEN [Suspect]
     Indication: NASAL CONGESTION
     Dosage: UNK, AS NEEDED
     Dates: start: 20111105, end: 20111107

REACTIONS (6)
  - RHINORRHOEA [None]
  - MALAISE [None]
  - MUSCULAR WEAKNESS [None]
  - HEADACHE [None]
  - HEAD TITUBATION [None]
  - ASTHENIA [None]
